FAERS Safety Report 8060168-5 (Version None)
Quarter: 2012Q1

REPORT INFORMATION
  Report Type: 
  Country: None (occurrence: None)
  Receive Date: 20120119
  Receipt Date: 20120119
  Transmission Date: 20120608
  Serious: Yes (Hospitalization)
  Sender: FDA-Public Use
  Company Number: None

PATIENT
  Age: 97 Year
  Sex: Female
  Weight: 39 kg

DRUGS (15)
  1. ASPIRIN [Concomitant]
  2. LEVOTHYROXINE SODIUM [Concomitant]
  3. PREDNISONE FORTE [Concomitant]
  4. METOPROLOL TARTRATE [Suspect]
     Indication: HYPERTENSION
     Dosage: 25MG BID PO  CHRONIC
     Route: 048
  5. NITROSTAT [Concomitant]
  6. NIACIN [Concomitant]
  7. ZOCOR [Concomitant]
  8. NATURAL TEARS [Concomitant]
  9. METAMUCIL-2 [Concomitant]
  10. M.V.I. [Concomitant]
  11. DOCUSATE [Concomitant]
  12. FISH OIL [Concomitant]
  13. VIT B [Concomitant]
  14. DIAPER RASH CREAM [Concomitant]
  15. CHOLESTYRAMINE [Concomitant]

REACTIONS (2)
  - BRADYCARDIA [None]
  - SYNCOPE [None]
